FAERS Safety Report 22892576 (Version 5)
Quarter: 2024Q1

REPORT INFORMATION
  Report Type: Report from Study
  Country: US (occurrence: US)
  Receive Date: 20230901
  Receipt Date: 20240124
  Transmission Date: 20240410
  Serious: No
  Sender: FDA-Public Use
  Company Number: US-002147023-NVSC2023US189880

PATIENT
  Sex: Female

DRUGS (3)
  1. ILARIS [Suspect]
     Active Substance: CANAKINUMAB
     Indication: Cryopyrin associated periodic syndrome
     Dosage: 150 MG, QMO
     Route: 058
     Dates: start: 20230501, end: 20230501
  2. ILARIS [Suspect]
     Active Substance: CANAKINUMAB
     Indication: Immune system disorder
     Dosage: UNK, OTHER (EVERY 4 WEEKS)
     Route: 058
  3. ILARIS [Suspect]
     Active Substance: CANAKINUMAB
     Indication: Cold urticaria

REACTIONS (4)
  - COVID-19 [Unknown]
  - Malaise [Unknown]
  - Dizziness [Unknown]
  - Product availability issue [Unknown]
